FAERS Safety Report 5321398-6 (Version None)
Quarter: 2007Q2

REPORT INFORMATION
  Report Type: 
  Country: None (occurrence: None)
  Receive Date: 20070504
  Receipt Date: 20070423
  Transmission Date: 20071010
  Serious: Yes (Death, Life-Threatening, Hospitalization)
  Sender: FDA-Public Use
  Company Number: CLOF-10508

PATIENT
  Age: 9 Year
  Sex: Female
  Weight: 21.4 kg

DRUGS (18)
  1. CLOFARABINE. MFR: GENZYME [Suspect]
     Indication: ACUTE MYELOID LEUKAEMIA
     Dosage: 27 MG QD X 5 IV
     Route: 042
     Dates: start: 20061121, end: 20061125
  2. CLOFARABINE. MFR: GENZYME [Suspect]
     Indication: ACUTE MYELOID LEUKAEMIA
     Dosage: 27 MG QD X 5 IV
     Route: 042
     Dates: start: 20070119, end: 20070122
  3. CLOFARABINE. MFR: GENZYME [Suspect]
     Indication: ACUTE MYELOID LEUKAEMIA
     Dosage: 27 MG QD X 5 IV
     Route: 042
     Dates: start: 20070404, end: 20070407
  4. ETOPOSIDE [Suspect]
     Indication: ACUTE MYELOID LEUKAEMIA
     Dosage: 90 MG QD IV
     Route: 042
     Dates: start: 20061121, end: 20061125
  5. ETOPOSIDE [Suspect]
     Indication: ACUTE MYELOID LEUKAEMIA
     Dosage: 90 MG QD IV
     Route: 042
     Dates: start: 20070119, end: 20070122
  6. ETOPOSIDE [Suspect]
     Indication: ACUTE MYELOID LEUKAEMIA
     Dosage: 90 MG QD IV
     Route: 042
     Dates: start: 20070405, end: 20070408
  7. CYCLOPHOSPHAMIDE [Suspect]
     Indication: ACUTE MYELOID LEUKAEMIA
     Dosage: 400 MG QD IV
     Route: 042
     Dates: start: 20061121, end: 20061125
  8. CYCLOPHOSPHAMIDE [Suspect]
     Indication: ACUTE MYELOID LEUKAEMIA
     Dosage: 400 MG QD IV
     Route: 042
     Dates: start: 20070119, end: 20070122
  9. CYCLOPHOSPHAMIDE [Suspect]
     Dosage: 400 MG QD IV
     Route: 042
     Dates: start: 20070405, end: 20070408
  10. POTASSIUM CHLORIDE [Concomitant]
  11. MAGNESIUM GLUCONATE [Concomitant]
  12. CYPROHEPTADINE HCL [Concomitant]
  13. FILGRASTIM [Concomitant]
  14. MICAFUNGIN [Concomitant]
  15. SULFAMETHOXAZOLE + TRIMETHOPRIM [Concomitant]
  16. VORICONAZOLE [Concomitant]
  17. PHYTONADIONE [Concomitant]
  18. DOCUSATE-SENNA [Concomitant]

REACTIONS (41)
  - ABDOMINAL PAIN [None]
  - ALANINE AMINOTRANSFERASE INCREASED [None]
  - ALPHA HAEMOLYTIC STREPTOCOCCAL INFECTION [None]
  - ANAEMIA [None]
  - ASPARTATE AMINOTRANSFERASE INCREASED [None]
  - ASTHENIA [None]
  - BLOOD POTASSIUM DECREASED [None]
  - BLOOD PRESSURE INCREASED [None]
  - BRAIN OEDEMA [None]
  - BRAIN SCAN ABNORMAL [None]
  - CENTRAL NERVOUS SYSTEM INFECTION [None]
  - CENTRAL NERVOUS SYSTEM LESION [None]
  - CEREBRAL HAEMATOMA [None]
  - COMA [None]
  - CONTUSION [None]
  - CONVULSION [None]
  - COUGH [None]
  - DIARRHOEA [None]
  - DISSEMINATED INTRAVASCULAR COAGULATION [None]
  - EYELID VASCULAR DISORDER [None]
  - FEBRILE NEUTROPENIA [None]
  - FUNGAL INFECTION [None]
  - GASTROINTESTINAL CANDIDIASIS [None]
  - GASTROINTESTINAL INFLAMMATION [None]
  - HEADACHE [None]
  - HEMIPARESIS [None]
  - HYPERNATRAEMIA [None]
  - HYPOTHALAMO-PITUITARY DISORDER [None]
  - INTRAVENTRICULAR HAEMORRHAGE [None]
  - LETHARGY [None]
  - LUNG INFECTION [None]
  - MYDRIASIS [None]
  - ORAL INTAKE REDUCED [None]
  - PAIN [None]
  - PALLOR [None]
  - PETECHIAE [None]
  - PUPIL FIXED [None]
  - PUPILLARY REFLEX IMPAIRED [None]
  - SOMNOLENCE [None]
  - THALAMIC INFARCTION [None]
  - VOMITING [None]
